FAERS Safety Report 6614530-5 (Version None)
Quarter: 2010Q1

REPORT INFORMATION
  Report Type: 
  Country: None (occurrence: None)
  Receive Date: 20100304
  Receipt Date: 20100304
  Transmission Date: 20100710
  Serious: Yes (Hospitalization)
  Sender: FDA-Public Use
  Company Number: None

PATIENT
  Age: 71 Year
  Sex: Male

DRUGS (2)
  1. GLIPIZIDE [Suspect]
  2. METFORMIN HYDROCHLORIDE [Suspect]

REACTIONS (3)
  - CONFUSIONAL STATE [None]
  - HYPOGLYCAEMIA [None]
  - SEDATION [None]
